FAERS Safety Report 9180986 (Version 1)
Quarter: 2013Q1

REPORT INFORMATION
  Report Type: Spontaneous
  Country: US (occurrence: US)
  Receive Date: 20130322
  Receipt Date: 20130322
  Transmission Date: 20140127
  Serious: No
  Sender: FDA-Public Use
  Company Number: PHEH2013US006656

PATIENT
  Sex: Male

DRUGS (4)
  1. TASIGNA [Suspect]
     Dosage: 300MG IN THE MORNING AND 300MG IN THE EVENING
     Route: 048
  2. ALLOPURINOL [Concomitant]
  3. LIPITOR [Concomitant]
  4. FLOMAX [Concomitant]

REACTIONS (3)
  - Gastric disorder [Unknown]
  - Constipation [Unknown]
  - Flatulence [Unknown]
